FAERS Safety Report 10057776 (Version 1)
Quarter: 2014Q2

REPORT INFORMATION
  Report Type: Spontaneous
  Country: US (occurrence: US)
  Receive Date: 20140404
  Receipt Date: 20140404
  Transmission Date: 20141212
  Serious: No
  Sender: FDA-Public Use
  Company Number: US-BIOGENIDEC-2014BI029647

PATIENT
  Age: 21 Year
  Sex: Female
  Weight: 78 kg

DRUGS (8)
  1. TECFIDERA [Suspect]
     Indication: RELAPSING-REMITTING MULTIPLE SCLEROSIS
     Route: 048
     Dates: start: 201306, end: 20131213
  2. GABAPENTIN [Concomitant]
  3. TYLENOL [Concomitant]
     Indication: HEADACHE
  4. TOPAMAX [Concomitant]
  5. SUMATRIPTAN [Concomitant]
  6. SERTRALINE [Concomitant]
  7. METHYLPREDNISOLONE [Concomitant]
     Route: 042
     Dates: start: 201307
  8. METHYLPREDNISOLONE [Concomitant]
     Route: 042
     Dates: start: 201308

REACTIONS (4)
  - Balance disorder [Unknown]
  - Confusional state [Unknown]
  - Tremor [Unknown]
  - Multiple sclerosis relapse [Recovered/Resolved]
